FAERS Safety Report 8541476-8 (Version None)
Quarter: 2012Q3

REPORT INFORMATION
  Report Type: 
  Country: None (occurrence: None)
  Receive Date: 20120726
  Receipt Date: 20110915
  Transmission Date: 20120928
  Serious: No
  Sender: FDA-Public Use
  Company Number: US-ASTRAZENECA-2011SE55635

PATIENT
  Age: 55 Year
  Sex: Female
  Weight: 54.4 kg

DRUGS (7)
  1. SEROQUEL XR [Suspect]
     Route: 048
  2. BUSPAR [Concomitant]
  3. ASPIRIN [Concomitant]
  4. SEROQUEL XR [Suspect]
     Indication: BIPOLAR DISORDER
     Route: 048
  5. SEROQUEL XR [Suspect]
     Route: 048
  6. ZANTAC [Concomitant]
     Dates: start: 20000101
  7. PLAVIX [Concomitant]
     Dates: start: 20050101, end: 20100101

REACTIONS (4)
  - PSYCHOMOTOR HYPERACTIVITY [None]
  - INTENTIONAL DRUG MISUSE [None]
  - LOGORRHOEA [None]
  - WEIGHT INCREASED [None]
